FAERS Safety Report 9486140 (Version 1)
Quarter: 2013Q3

REPORT INFORMATION
  Report Type: Spontaneous
  Country: US (occurrence: US)
  Receive Date: 20130829
  Receipt Date: 20130829
  Transmission Date: 20140515
  Serious: No
  Sender: FDA-Public Use
  Company Number: US-BAYER-2013-104419

PATIENT
  Age: 77 Year
  Sex: Female
  Weight: 83 kg

DRUGS (1)
  1. ALEVE TABLET [Suspect]
     Indication: PAIN
     Dosage: 2 DF, BID
     Route: 048
     Dates: start: 201308

REACTIONS (1)
  - Extra dose administered [None]
